FAERS Safety Report 12430554 (Version 1)
Quarter: 2016Q2

REPORT INFORMATION
  Report Type: Report from Study
  Country: US (occurrence: US)
  Receive Date: 20160602
  Receipt Date: 20160602
  Transmission Date: 20160815
  Serious: No
  Sender: FDA-Public Use
  Company Number: US-ABBVIE-15P-163-1479612-00

PATIENT
  Age: 54 Year
  Sex: Female
  Weight: 67.65 kg

DRUGS (13)
  1. DRAMAMINE [Concomitant]
     Active Substance: DIMENHYDRINATE
     Indication: NAUSEA
  2. MARINOL [Suspect]
     Active Substance: DRONABINOL
     Indication: VOMITING
     Route: 048
     Dates: start: 201509, end: 201509
  3. MARINOL [Suspect]
     Active Substance: DRONABINOL
     Route: 048
     Dates: start: 201509, end: 201509
  4. OMEPRAZOLE. [Concomitant]
     Active Substance: OMEPRAZOLE
     Indication: GASTROOESOPHAGEAL REFLUX DISEASE
  5. DRAMAMINE [Concomitant]
     Active Substance: DIMENHYDRINATE
     Indication: VOMITING
  6. LISINOPRIL. [Concomitant]
     Active Substance: LISINOPRIL
     Indication: HYPERTENSION
  7. VITAMIN B [Concomitant]
     Active Substance: VITAMIN B
     Indication: VITAMIN SUPPLEMENTATION
  8. MELATONIN [Concomitant]
     Active Substance: MELATONIN
     Indication: SLEEP DISORDER THERAPY
  9. MARINOL [Suspect]
     Active Substance: DRONABINOL
     Indication: NAUSEA
     Route: 048
     Dates: start: 201509, end: 201509
  10. MARINOL [Suspect]
     Active Substance: DRONABINOL
     Route: 048
     Dates: start: 201509, end: 201509
  11. MARINOL [Suspect]
     Active Substance: DRONABINOL
     Route: 048
     Dates: start: 201509, end: 20151005
  12. CENTRUM SILVER [Concomitant]
     Active Substance: MINERALS\VITAMINS
     Indication: VITAMIN SUPPLEMENTATION
  13. BIOTIN [Concomitant]
     Active Substance: BIOTIN
     Indication: SUPPLEMENTATION THERAPY

REACTIONS (3)
  - Vomiting [Not Recovered/Not Resolved]
  - Nausea [Not Recovered/Not Resolved]
  - Drug dose omission [Unknown]

NARRATIVE: CASE EVENT DATE: 20151005
